FAERS Safety Report 5927618-9 (Version None)
Quarter: 2008Q4

REPORT INFORMATION
  Report Type: 
  Country: None (occurrence: None)
  Receive Date: 20081021
  Receipt Date: 20081021
  Transmission Date: 20090506
  Serious: Yes (Other)
  Sender: FDA-Public Use
  Company Number: None

PATIENT
  Age: 37 Year
  Sex: Female
  Weight: 62.5964 kg

DRUGS (1)
  1. MIRENA [Suspect]
     Indication: CONTRACEPTION
     Dates: start: 20070301, end: 20081014

REACTIONS (9)
  - ACNE [None]
  - ANGER [None]
  - BLOOD PRESSURE FLUCTUATION [None]
  - DEPRESSION [None]
  - HYPERTENSION [None]
  - HYPOMENORRHOEA [None]
  - MOOD ALTERED [None]
  - SUICIDAL IDEATION [None]
  - WEIGHT INCREASED [None]
